FAERS Safety Report 15904062 (Version 1)
Quarter: 2019Q1

REPORT INFORMATION
  Report Type: Spontaneous
  Country: DE (occurrence: DE)
  Receive Date: 20190204
  Receipt Date: 20190204
  Transmission Date: 20190417
  Serious: Yes (Life-Threatening, Other)
  Sender: FDA-Public Use
  Company Number: DE-BIOGEN-2019BI00690669

PATIENT
  Age: 6 Month
  Sex: Male
  Weight: 5.8 kg

DRUGS (1)
  1. SPINRAZA [Suspect]
     Active Substance: NUSINERSEN
     Indication: SPINAL MUSCULAR ATROPHY
     Dosage: ACCORDING TO THE MANUFACTURER^S DOSAGE
     Route: 037
     Dates: start: 201807

REACTIONS (2)
  - Cardiac arrest [Recovered/Resolved]
  - Sinus arrest [Recovered/Resolved]

NARRATIVE: CASE EVENT DATE: 20190116
